FAERS Safety Report 5194359-8 (Version None)
Quarter: 2006Q4

REPORT INFORMATION
  Report Type: 
  Country: None (occurrence: None)
  Receive Date: 20061228
  Receipt Date: 20061212
  Transmission Date: 20070319
  Serious: Yes (Other)
  Sender: FDA-Public Use
  Company Number: DE-ABBOTT-06P-062-0353065-00

PATIENT

DRUGS (2)
  1. CYCLOSPORINE [Suspect]
     Indication: IMMUNOSUPPRESSANT DRUG THERAPY
     Dosage: 114 MG/M^2/DAY
  2. MYCOPHENOLATE MOFETIL [Concomitant]
     Indication: IMMUNOSUPPRESSANT DRUG THERAPY
     Dosage: 1.1 G/M^2/DAY

REACTIONS (4)
  - FIBROSIS [None]
  - GLOMERULAR VASCULAR DISORDER [None]
  - RENAL TUBULAR ATROPHY [None]
  - TRANSPLANT REJECTION [None]
